FAERS Safety Report 21068880 (Version 1)
Quarter: 2022Q3

REPORT INFORMATION
  Report Type: Spontaneous
  Country: US (occurrence: None)
  Receive Date: 20220711
  Receipt Date: 20220711
  Transmission Date: 20221027
  Serious: Yes (Hospitalization)
  Sender: FDA-Public Use
  Company Number: None

PATIENT
  Age: 73 Year
  Sex: Male
  Weight: 83 kg

DRUGS (7)
  1. YESCARTA [Suspect]
     Active Substance: AXICABTAGENE CILOLEUCEL
     Indication: Diffuse large B-cell lymphoma
     Dosage: FREQUENCY : ONCE;?
     Route: 041
     Dates: start: 20220510, end: 20220510
  2. ACTEMRA [Concomitant]
     Active Substance: TOCILIZUMAB
     Dates: end: 20220519
  3. anakinra (Kineret) subcutaneous injection [Concomitant]
     Dates: end: 20220523
  4. dexAMETHasone (Decadron) injection [Concomitant]
     Dates: end: 20220529
  5. levETIRAcetam (Keppra) 500 mg tablet [Concomitant]
     Dates: start: 20220509, end: 20220710
  6. piperacillin-tazobactam (Zosyn [Concomitant]
     Dates: end: 20220523
  7. acyclovir (Zovirax) [Concomitant]
     Dates: start: 20220510, end: 20220710

REACTIONS (2)
  - Cytokine release syndrome [None]
  - Immune effector cell-associated neurotoxicity syndrome [None]

NARRATIVE: CASE EVENT DATE: 20220510
